FAERS Safety Report 11539060 (Version 1)
Quarter: 2015Q3

REPORT INFORMATION
  Report Type: Report from Study
  Country: US (occurrence: US)
  Receive Date: 20150923
  Receipt Date: 20150923
  Transmission Date: 20151125
  Serious: Yes (Hospitalization, Other)
  Sender: FDA-Public Use
  Company Number: US-AMGEN-USASL2015096996

PATIENT
  Age: 40 Year
  Sex: Female

DRUGS (1)
  1. ENBREL [Suspect]
     Active Substance: ETANERCEPT
     Indication: ANKYLOSING SPONDYLITIS
     Dosage: UNK
     Route: 065
     Dates: start: 20150721, end: 20150818

REACTIONS (5)
  - Kidney infection [Not Recovered/Not Resolved]
  - Central nervous system lesion [Unknown]
  - Dysarthria [Unknown]
  - Blood glucose abnormal [Unknown]
  - Disability [Unknown]

NARRATIVE: CASE EVENT DATE: 201508
